FAERS Safety Report 10621831 (Version 1)
Quarter: 2014Q4

REPORT INFORMATION
  Report Type: Spontaneous
  Country: US (occurrence: None)
  Receive Date: 20141201
  Receipt Date: 20141201
  Transmission Date: 20150529
  Serious: No
  Sender: FDA-Public Use
  Company Number: None

PATIENT
  Age: 56 Year
  Sex: Female
  Weight: 72.58 kg

DRUGS (1)
  1. ENBREL [Suspect]
     Active Substance: ETANERCEPT
     Indication: RHEUMATOID ARTHRITIS
     Dates: start: 20141009, end: 20141129

REACTIONS (4)
  - Cough [None]
  - Pulmonary congestion [None]
  - Confusional state [None]
  - Hyperhidrosis [None]

NARRATIVE: CASE EVENT DATE: 20141101
